FAERS Safety Report 14860389 (Version 2)
Quarter: 2018Q2

REPORT INFORMATION
  Report Type: Spontaneous
  Country: IT (occurrence: IT)
  Receive Date: 20180508
  Receipt Date: 20180511
  Transmission Date: 20180711
  Serious: Yes (Hospitalization)
  Sender: FDA-Public Use
  Company Number: IT-009507513-1805ITA002572

PATIENT
  Age: 55 Year
  Sex: Male
  Weight: 75.96 kg

DRUGS (3)
  1. CUBICIN [Suspect]
     Active Substance: DAPTOMYCIN
     Indication: BONE ABSCESS
     Dosage: 500 MG, QD
     Route: 042
     Dates: start: 20180322, end: 20180409
  2. PIPERACILLIN [Concomitant]
     Active Substance: PIPERACILLIN
     Dosage: 6 G, UNK
     Route: 042
     Dates: start: 20180320
  3. CLINDAMYCIN PHOSPHATE. [Concomitant]
     Active Substance: CLINDAMYCIN PHOSPHATE
     Dosage: UNK
     Dates: start: 20180320

REACTIONS (3)
  - Respiratory failure [Recovering/Resolving]
  - Pyrexia [Recovering/Resolving]
  - Pneumonia [Recovering/Resolving]

NARRATIVE: CASE EVENT DATE: 20180330
